FAERS Safety Report 9082593 (Version 1)
Quarter: 2013Q1

REPORT INFORMATION
  Report Type: Spontaneous
  Country: CA (occurrence: CA)
  Receive Date: 20130130
  Receipt Date: 20130130
  Transmission Date: 20140127
  Serious: Yes (Other)
  Sender: FDA-Public Use
  Company Number: PHHY2013CA008608

PATIENT
  Sex: Female

DRUGS (4)
  1. ACLASTA [Suspect]
     Indication: OSTEOPOROSIS
     Dosage: UNK
     Route: 042
     Dates: start: 20100209
  2. ACLASTA [Suspect]
     Dosage: UNK
     Route: 042
     Dates: start: 20110118
  3. ACLASTA [Suspect]
     Dosage: UNK
     Route: 042
     Dates: start: 20120124
  4. ACLASTA [Suspect]
     Dosage: UNK
     Route: 042
     Dates: start: 20130124

REACTIONS (5)
  - Aphagia [Unknown]
  - Asthenia [Unknown]
  - Body temperature increased [Unknown]
  - Myalgia [Unknown]
  - Nausea [Unknown]
